FAERS Safety Report 18654937 (Version 8)
Quarter: 2021Q3

REPORT INFORMATION
  Report Type: Report from Study
  Country: CR (occurrence: CR)
  Receive Date: 20201223
  Receipt Date: 20210913
  Transmission Date: 20211014
  Serious: Yes (Other)
  Sender: FDA-Public Use
  Company Number: CR-NOVOPROD-775198

PATIENT
  Age: 31 Year
  Sex: Male
  Weight: 68 kg

DRUGS (8)
  1. IDEG PDS290 [Suspect]
     Active Substance: INSULIN DEGLUDEC
     Dosage: DOSE DECREASED
     Route: 058
  2. INSULIN [Concomitant]
     Active Substance: INSULIN NOS
     Dosage: 2.5IU PER CARBO AT BREAKFAST, 2IU AT LUNCH AND 3IU AT DINNER
     Route: 058
  3. INSULIN [Concomitant]
     Active Substance: INSULIN NOS
     Indication: TYPE 1 DIABETES MELLITUS
     Dosage: UNK
     Route: 058
     Dates: start: 2004
  4. IDEG PDS290 [Suspect]
     Active Substance: INSULIN DEGLUDEC
     Dosage: 16 IU, QD
     Route: 058
  5. IDEG PDS290 [Suspect]
     Active Substance: INSULIN DEGLUDEC
     Dosage: 16 IU, QD
     Route: 058
  6. INSULIN [Concomitant]
     Active Substance: INSULIN NOS
     Dosage: 1IU PER CARBO AT BREAKFAST AND 2.5IU PER CARBO AT LUNCH AND DINNER.
     Route: 058
     Dates: start: 2004
  7. INSULIN [Concomitant]
     Active Substance: INSULIN NOS
     Dosage: 1.5IU PER CARBO AT BREAKFAST AND LUNCH AND 2.5IU AT DINNER.
     Route: 058
     Dates: start: 2004
  8. IDEG PDS290 [Suspect]
     Active Substance: INSULIN DEGLUDEC
     Indication: TYPE 1 DIABETES MELLITUS
     Dosage: 18 IU, QD
     Route: 058
     Dates: start: 2018

REACTIONS (12)
  - Hypoglycaemia [Recovered/Resolved]
  - Hypoglycaemia [Recovering/Resolving]
  - Blood glucose fluctuation [Recovering/Resolving]
  - COVID-19 [Recovering/Resolving]
  - Hypoglycaemia [Recovering/Resolving]
  - Blood glucose increased [Recovering/Resolving]
  - Hypoglycaemia [Recovering/Resolving]
  - Hyperglycaemia [Recovering/Resolving]
  - Pruritus [Not Recovered/Not Resolved]
  - Syncope [Recovered/Resolved]
  - Hypoglycaemia [Recovering/Resolving]
  - Hyperglycaemia [Not Recovered/Not Resolved]

NARRATIVE: CASE EVENT DATE: 202011
